FAERS Safety Report 17585252 (Version 1)
Quarter: 2020Q1

REPORT INFORMATION
  Report Type: Spontaneous
  Country: IT (occurrence: IT)
  Receive Date: 20200326
  Receipt Date: 20200326
  Transmission Date: 20200409
  Serious: Yes (Other)
  Sender: FDA-Public Use
  Company Number: IT-MYLANLABS-2020M1031592

PATIENT
  Age: 17 Year
  Sex: Female
  Weight: 48 kg

DRUGS (3)
  1. QUETIAPINE. [Suspect]
     Active Substance: QUETIAPINE
     Indication: AFFECTIVE DISORDER
     Dosage: 400 MILLIGRAM, QD
     Route: 048
     Dates: start: 20200211, end: 20200220
  2. TAVOR (LORAZEPAM) [Concomitant]
     Active Substance: LORAZEPAM
     Dosage: 2 MILLIGRAM
     Route: 048
     Dates: start: 20200209, end: 20200303
  3. RESILIENT [Concomitant]
     Active Substance: LITHIUM SULFATE
     Dosage: UNK
     Dates: start: 20200205, end: 20200303

REACTIONS (1)
  - Microcytic anaemia [Recovering/Resolving]

NARRATIVE: CASE EVENT DATE: 20200220
